FAERS Safety Report 6441781-5 (Version None)
Quarter: 2009Q4

REPORT INFORMATION
  Report Type: 
  Country: None (occurrence: None)
  Receive Date: 20091116
  Receipt Date: 20091104
  Transmission Date: 20100525
  Serious: Yes (Death)
  Sender: FDA-Public Use
  Company Number: US-PFIZER INC-2009241381

PATIENT
  Sex: Male

DRUGS (17)
  1. VFEND [Suspect]
     Indication: ASPERGILLOSIS
     Dosage: 200 MG, 2X/DAY
     Route: 048
  2. TEMAZEPAM [Concomitant]
     Indication: SEDATIVE THERAPY
     Route: 048
  3. SIMVASTATIN [Concomitant]
     Indication: BLOOD CHOLESTEROL
     Route: 048
  4. ARANESP [Concomitant]
     Dosage: 100 UG, UNK
     Route: 058
  5. ASPIRIN [Concomitant]
     Indication: ANALGESIC THERAPY
     Route: 048
  6. VENTOLIN [Concomitant]
     Route: 045
  7. FOSAMAX [Concomitant]
     Route: 048
  8. FUROSEMIDE [Concomitant]
     Indication: DIURETIC THERAPY
     Route: 048
  9. LANTUS [Concomitant]
     Indication: HYPERGLYCAEMIA
     Route: 058
  10. PREDNISONE [Concomitant]
     Route: 048
  11. ROCALTROL [Concomitant]
     Route: 048
  12. VITAMIN D [Concomitant]
     Route: 048
  13. BACTROBAN [Concomitant]
     Route: 061
  14. HYDROCORTISONE [Concomitant]
     Route: 061
  15. COREG [Concomitant]
     Route: 048
  16. SENNA [Concomitant]
     Route: 048
  17. NOVOLIN [Concomitant]

REACTIONS (1)
  - DEATH [None]
